FAERS Safety Report 16636681 (Version 3)
Quarter: 2019Q3

REPORT INFORMATION
  Report Type: Spontaneous
  Country: US (occurrence: US)
  Receive Date: 20190726
  Receipt Date: 20190822
  Transmission Date: 20191004
  Serious: No
  Sender: FDA-Public Use
  Company Number: US-JNJFOC-20190717529

PATIENT
  Age: 91 Year
  Sex: Male
  Weight: 59.02 kg

DRUGS (1)
  1. NIZORAL [Suspect]
     Active Substance: KETOCONAZOLE
     Indication: PRURITUS
     Dosage: 0.02
     Route: 061
     Dates: start: 2017, end: 2019

REACTIONS (6)
  - Drug ineffective [Unknown]
  - Rash [Not Recovered/Not Resolved]
  - Alopecia [Not Recovered/Not Resolved]
  - Product label issue [Unknown]
  - Pruritus [Not Recovered/Not Resolved]
  - Poor peripheral circulation [Not Recovered/Not Resolved]

NARRATIVE: CASE EVENT DATE: 2017
